FAERS Safety Report 5918185-4 (Version None)
Quarter: 2008Q3

REPORT INFORMATION
  Report Type: 
  Country: None (occurrence: None)
  Receive Date: 20080909
  Receipt Date: 20071112
  Transmission Date: 20090109
  Serious: Yes (Death)
  Sender: FDA-Public Use
  Company Number: 114-20785-07110988

PATIENT
  Age: 66 Year
  Sex: Female

DRUGS (1)
  1. THALIDOMIDE [Suspect]
     Indication: MULTIPLE MYELOMA
     Dosage: 50 MG TWICE DAILY ORAL
     Route: 048

REACTIONS (1)
  - MULTIPLE MYELOMA [None]
